FAERS Safety Report 5402404-7 (Version None)
Quarter: 2007Q3

REPORT INFORMATION
  Report Type: 
  Country: None (occurrence: None)
  Receive Date: 20070730
  Receipt Date: 20070718
  Transmission Date: 20080115
  Serious: Yes (Death, Hospitalization)
  Sender: FDA-Public Use
  Company Number: 200702IM000102

PATIENT
  Age: 67 Year
  Sex: Female
  Weight: 41.5 kg

DRUGS (8)
  1. INTERFERON GAMMA-1B [Suspect]
     Indication: IDIOPATHIC PULMONARY FIBROSIS
     Dosage: 200 UG, TIW, SUBCUTANEOUS
     Route: 058
     Dates: start: 20060111, end: 20070223
  2. FOSAMAX [Concomitant]
  3. CALCIUM WITH VITAMIN D [Concomitant]
  4. ACETAMINOPHEN [Concomitant]
  5. PREDNISONE TAB [Concomitant]
  6. VITAMIN CAP [Concomitant]
  7. IMURAN [Concomitant]
  8. ACETYLCYSTEINE [Concomitant]

REACTIONS (1)
  - SEPSIS [None]
